FAERS Safety Report 24292203 (Version 1)
Quarter: 2024Q3

REPORT INFORMATION
  Report Type: Spontaneous
  Country: US (occurrence: None)
  Receive Date: 20240906
  Receipt Date: 20240906
  Transmission Date: 20241017
  Serious: No
  Sender: DOMPE FARMACEUTICI
  Company Number: US-FARMAPROD-202307-2076

PATIENT
  Sex: Female
  Weight: 55.34 kg

DRUGS (3)
  1. OXERVATE [Suspect]
     Active Substance: CENEGERMIN-BKBJ
     Indication: Neurotrophic keratopathy
     Route: 047
     Dates: start: 20230706
  2. IRBESARTAN [Concomitant]
     Active Substance: IRBESARTAN
  3. PROPRANOLOL HYDROCHLORIDE [Concomitant]
     Active Substance: PROPRANOLOL HYDROCHLORIDE
     Dosage: 40 MG / 5 ML

REACTIONS (3)
  - Wrong technique in product usage process [Unknown]
  - Ocular discomfort [Unknown]
  - Eye pain [Unknown]
